FAERS Safety Report 8606313-1 (Version None)
Quarter: 2012Q3

REPORT INFORMATION
  Report Type: 
  Country: None (occurrence: None)
  Receive Date: 20120820
  Receipt Date: 20120809
  Transmission Date: 20120928
  Serious: Yes (Hospitalization)
  Sender: FDA-Public Use
  Company Number: IT-ASTRAZENECA-2012SE56363

PATIENT
  Age: 15048 Day
  Sex: Female

DRUGS (7)
  1. FASLODEX [Suspect]
     Dosage: STRENGTH OF 250 MG/5ML, 500 MG WITH UNKNOWN FREQUENCY
     Route: 030
     Dates: start: 20120609, end: 20120609
  2. DIAZEPAM [Concomitant]
     Route: 048
  3. FASLODEX [Suspect]
     Indication: BREAST CANCER
     Dosage: 500 MG WITH UNKNOWN FREQUENCY
     Route: 030
     Dates: start: 20111005, end: 20111005
  4. OMEPRAZOLE [Concomitant]
     Route: 048
  5. PREDNISONE TAB [Concomitant]
     Route: 048
  6. OXYCONTIN [Concomitant]
     Route: 048
  7. OXYCODONE AND ACETAMINOPHEN [Concomitant]
     Dosage: 10 MG+ 325 MG
     Route: 048

REACTIONS (1)
  - HYPERCALCAEMIA [None]
